FAERS Safety Report 12036147 (Version 1)
Quarter: 2016Q1

REPORT INFORMATION
  Report Type: Report from Study
  Country: US (occurrence: US)
  Receive Date: 20160207
  Receipt Date: 20160207
  Transmission Date: 20160526
  Serious: No
  Sender: FDA-Public Use
  Company Number: US-ABBVIE-15K-163-1524586-00

PATIENT
  Age: 53 Year
  Sex: Female

DRUGS (2)
  1. HUMIRA [Suspect]
     Active Substance: ADALIMUMAB
     Dosage: DAY EIGHT
     Route: 058
     Dates: start: 20150928
  2. HUMIRA [Suspect]
     Active Substance: ADALIMUMAB
     Indication: PSORIASIS
     Dosage: DAY 1
     Route: 058
     Dates: start: 20150921, end: 20150921

REACTIONS (11)
  - Anger [Unknown]
  - Activities of daily living impaired [Unknown]
  - Skin irritation [Unknown]
  - Rash erythematous [Unknown]
  - Nausea [Recovered/Resolved]
  - Emotional distress [Unknown]
  - Helplessness [Unknown]
  - Pruritus [Unknown]
  - Rash pruritic [Unknown]
  - Pain [Unknown]
  - Frustration tolerance decreased [Unknown]

NARRATIVE: CASE EVENT DATE: 2015
